FAERS Safety Report 5339559-9 (Version None)
Quarter: 2007Q2

REPORT INFORMATION
  Report Type: 
  Country: None (occurrence: None)
  Receive Date: 20070405
  Receipt Date: 20061121
  Transmission Date: 20071010
  Serious: No
  Sender: FDA-Public Use
  Company Number: US200611004035

PATIENT
  Age: 76 Year
  Sex: Female

DRUGS (7)
  1. CYMBALTA [Suspect]
     Indication: ANXIETY
     Dosage: 60 MG, ORAL
     Route: 048
     Dates: start: 20051101, end: 20060101
  2. NEXIUM [Concomitant]
  3. MOBIC [Concomitant]
  4. ACTONEL [Concomitant]
  5. ZOCOR [Concomitant]
  6. QUININE SULFATE [Concomitant]
  7. ACETAMINOPHEN [Concomitant]

REACTIONS (10)
  - ABDOMINAL PAIN UPPER [None]
  - ABNORMAL DREAMS [None]
  - AMNESIA [None]
  - ANOREXIA [None]
  - FEELING ABNORMAL [None]
  - GASTROENTERITIS VIRAL [None]
  - HYPERHIDROSIS [None]
  - HYPERSOMNIA [None]
  - TEARFULNESS [None]
  - TREMOR [None]
